FAERS Safety Report 21811307 (Version 1)
Quarter: 2023Q1

REPORT INFORMATION
  Report Type: Spontaneous
  Country: US (occurrence: US)
  Receive Date: 20230103
  Receipt Date: 20230103
  Transmission Date: 20230417
  Serious: No
  Sender: FDA-Public Use
  Company Number: US-PFIZER INC-202201399953

PATIENT
  Age: 74 Year
  Sex: Male
  Weight: 66.68 kg

DRUGS (9)
  1. PAXLOVID [Suspect]
     Active Substance: NIRMATRELVIR\RITONAVIR
     Indication: COVID-19 treatment
     Dosage: 300MG/100MG DOSE PACK
     Dates: start: 20221224
  2. LIPITOR [Concomitant]
     Active Substance: ATORVASTATIN CALCIUM
     Dosage: 30 MG
  3. SYNTHROID [Concomitant]
     Active Substance: LEVOTHYROXINE SODIUM
     Dosage: 100 UG, DAILY
  4. SYNTHROID [Concomitant]
     Active Substance: LEVOTHYROXINE SODIUM
     Dosage: 75 UG, DAILY
  5. TYLENOL [Concomitant]
     Active Substance: ACETAMINOPHEN
     Indication: Body temperature increased
     Dosage: UNK
  6. IBUPROFEN [Concomitant]
     Active Substance: IBUPROFEN
     Indication: Body temperature increased
     Dosage: UNK
  7. NYSTATIN [Concomitant]
     Active Substance: NYSTATIN
     Dosage: UNK
  8. PCP [CODEINE PHOSPHATE;PHENAZONE;PHENOBARBITAL] [Concomitant]
     Dosage: UNK
  9. DELSYM [Concomitant]
     Active Substance: DEXTROMETHORPHAN
     Indication: Cough
     Dosage: UNK

REACTIONS (5)
  - Headache [Unknown]
  - Eye discharge [Unknown]
  - Vision blurred [Unknown]
  - Poor quality sleep [Unknown]
  - Therapeutic product effect incomplete [Unknown]
